FAERS Safety Report 23210353 (Version 1)
Quarter: 2023Q4

REPORT INFORMATION
  Report Type: Spontaneous
  Country: PT (occurrence: PT)
  Receive Date: 20231121
  Receipt Date: 20231121
  Transmission Date: 20240110
  Serious: Yes (Life-Threatening)
  Sender: FDA-Public Use
  Company Number: None

PATIENT
  Age: 65 Year
  Sex: Female

DRUGS (7)
  1. PACLITAXEL [Suspect]
     Active Substance: PACLITAXEL
     Indication: Ovarian cancer
     Dosage: 348MG EM 500ML DE SF, A PERFUNDIR EM 3H, EM CICLO DE 3/3 SEMANAS
     Dates: start: 20230922
  2. CLEMASTINE [Concomitant]
     Active Substance: CLEMASTINE
  3. GRANISETRON [Concomitant]
     Active Substance: GRANISETRON
  4. APREPITANT [Concomitant]
     Active Substance: APREPITANT
  5. FAMOTIDINE [Concomitant]
     Active Substance: FAMOTIDINE
  6. CARBOPLATIN [Concomitant]
     Active Substance: CARBOPLATIN
     Dosage: 848MG, VIA IV
  7. DEXAMETHASONE [Concomitant]
     Active Substance: DEXAMETHASONE

REACTIONS (5)
  - Disorientation [Recovered/Resolved]
  - Respiratory arrest [Recovered/Resolved]
  - Petit mal epilepsy [Recovered/Resolved]
  - Tongue movement disturbance [Recovered/Resolved]
  - Tonic clonic movements [Recovered/Resolved]

NARRATIVE: CASE EVENT DATE: 20230922
